FAERS Safety Report 6060659-2 (Version None)
Quarter: 2009Q1

REPORT INFORMATION
  Report Type: 
  Country: None (occurrence: None)
  Receive Date: 20090130
  Receipt Date: 20090130
  Transmission Date: 20090719
  Serious: Yes (Other)
  Sender: FDA-Public Use
  Company Number: None

PATIENT
  Sex: Male
  Weight: 81.6475 kg

DRUGS (1)
  1. SERTRALINE [Suspect]
     Indication: MAJOR DEPRESSION
     Dates: start: 20060830, end: 20060913

REACTIONS (5)
  - ANXIETY [None]
  - CONDITION AGGRAVATED [None]
  - MOOD ALTERED [None]
  - PRODUCT QUALITY ISSUE [None]
  - SLEEP DISORDER [None]
